FAERS Safety Report 5736128-3 (Version None)
Quarter: 2008Q2

REPORT INFORMATION
  Report Type: 
  Country: None (occurrence: None)
  Receive Date: 20080509
  Receipt Date: 20080509
  Transmission Date: 20081010
  Serious: Yes (Life-Threatening, Hospitalization, Disabling, Other)
  Sender: FDA-Public Use
  Company Number: None

PATIENT
  Age: 51 Year
  Sex: Male
  Weight: 127.0072 kg

DRUGS (1)
  1. LEVAQUIN [Suspect]
     Indication: URINARY TRACT INFECTION
     Dosage: 750MG      1 TAB DAILY X 7 DA       PO
     Route: 048
     Dates: start: 20080426, end: 20080429

REACTIONS (5)
  - ALTERED STATE OF CONSCIOUSNESS [None]
  - BLOOD GLUCOSE DECREASED [None]
  - DECREASED ACTIVITY [None]
  - DYSKINESIA [None]
  - ENCEPHALOPATHY [None]
